FAERS Safety Report 23214141 (Version 1)
Quarter: 2023Q4

REPORT INFORMATION
  Report Type: Spontaneous
  Country: US (occurrence: None)
  Receive Date: 20231121
  Receipt Date: 20231121
  Transmission Date: 20240110
  Serious: No
  Sender: FDA-Public Use
  Company Number: None

PATIENT
  Age: 18 Year
  Sex: Female
  Weight: 56.25 kg

DRUGS (1)
  1. DELSYM [Suspect]
     Active Substance: DEXTROMETHORPHAN
     Indication: Cough
     Route: 048
     Dates: start: 20231119, end: 20231120

REACTIONS (3)
  - Urticaria [None]
  - Pruritus [None]
  - Generalised oedema [None]

NARRATIVE: CASE EVENT DATE: 20231120
